FAERS Safety Report 8759668 (Version 2)
Quarter: 2012Q4

REPORT INFORMATION
  Report Type: Report from Study
  Country: DE (occurrence: DE)
  Receive Date: 20120830
  Receipt Date: 20120907
  Transmission Date: 20130627
  Serious: Yes (Hospitalization)
  Sender: FDA-Public Use
  Company Number: DE-ROCHE-1107708

PATIENT
  Sex: Male

DRUGS (5)
  1. RANIBIZUMAB [Suspect]
     Indication: DIABETIC RETINAL OEDEMA
     Dosage: Dose: unknown, Last dose prior to sae 29/6/2012
     Route: 050
     Dates: start: 20120529, end: 20120629
  2. RAMIPRIL [Concomitant]
  3. AMLODIPINE [Concomitant]
  4. HCT BETA [Concomitant]
  5. INSULIN [Concomitant]

REACTIONS (1)
  - Neuropathic arthropathy [Recovered/Resolved with Sequelae]
